FAERS Safety Report 10455864 (Version 3)
Quarter: 2014Q4

REPORT INFORMATION
  Report Type: Spontaneous
  Country: US (occurrence: None)
  Receive Date: 20140911
  Receipt Date: 20141016
  Transmission Date: 20150528
  Serious: Yes (Hospitalization)
  Sender: FDA-Public Use
  Company Number: US-001224N

PATIENT
  Age: 48 Year
  Sex: Female

DRUGS (2)
  1. GATTEX [Suspect]
     Active Substance: TEDUGLUTIDE\WATER
     Indication: SHORT-BOWEL SYNDROME
     Route: 058
     Dates: start: 20140709, end: 20140828
  2. SOLUTIONS FOR PARENTERAL NUTRITION [Concomitant]
     Active Substance: AMINO ACIDS\DEXTROSE\ELECTROLYTES NOS

REACTIONS (7)
  - Diarrhoea [None]
  - Chills [None]
  - Incorrect dose administered [None]
  - Pancreatitis [None]
  - Pyrexia [None]
  - Blood pressure decreased [None]
  - Device related sepsis [None]

NARRATIVE: CASE EVENT DATE: 2014
